FAERS Safety Report 15391992 (Version 1)
Quarter: 2018Q3

REPORT INFORMATION
  Report Type: Spontaneous
  Country: US (occurrence: US)
  Receive Date: 20180917
  Receipt Date: 20180917
  Transmission Date: 20181010
  Serious: Yes (Other)
  Sender: FDA-Public Use
  Company Number: US-PFIZER INC-2018370435

PATIENT
  Age: 29 Year
  Sex: Female
  Weight: 93.9 kg

DRUGS (2)
  1. SUNITINIB MALATE. [Suspect]
     Active Substance: SUNITINIB MALATE
     Indication: ACUTE MYELOID LEUKAEMIA
     Dosage: 50 MG, DAILY
     Dates: start: 201806
  2. SUNITINIB MALATE. [Suspect]
     Active Substance: SUNITINIB MALATE
     Indication: LEUKAEMIA RECURRENT
     Dosage: 25 MG, 1X/DAY (TAKE 25 MG BY MOUTH ONCE A DAY. PLEASE DISPENSE IN 12.5MG CAPSULES)
     Route: 048
     Dates: start: 20180817

REACTIONS (3)
  - Product use in unapproved indication [Unknown]
  - Neutropenia [Recovered/Resolved]
  - Thrombocytopenia [Recovered/Resolved]

NARRATIVE: CASE EVENT DATE: 201806
